FAERS Safety Report 25189995 (Version 1)
Quarter: 2025Q2

REPORT INFORMATION
  Report Type: Spontaneous
  Country: US (occurrence: None)
  Receive Date: 20250411
  Receipt Date: 20250411
  Transmission Date: 20250717
  Serious: Yes (unspecified)
  Sender: FDA-CTU
  Company Number: None

PATIENT
  Age: 40 Year
  Sex: Male
  Weight: 76.2 kg

DRUGS (1)
  1. OLANZAPINE [Suspect]
     Active Substance: OLANZAPINE
     Indication: Agitation
     Route: 030
     Dates: start: 20250410, end: 20250410

REACTIONS (4)
  - Fall [None]
  - Head injury [None]
  - Skin laceration [None]
  - Hypotension [None]

NARRATIVE: CASE EVENT DATE: 20250410
